FAERS Safety Report 8234209-6 (Version None)
Quarter: 2012Q1

REPORT INFORMATION
  Report Type: 
  Country: None (occurrence: None)
  Receive Date: 20120307
  Receipt Date: 20101029
  Transmission Date: 20120608
  Serious: No
  Sender: FDA-Public Use
  Company Number: PHHY2010US73540

PATIENT
  Sex: Male

DRUGS (1)
  1. AFINITOR [Suspect]
     Dosage: IN THE EVENING, ORAL, IN THE MORNING, ORAL
     Route: 048

REACTIONS (1)
  - MUSCULOSKELETAL PAIN [None]
